FAERS Safety Report 4904714-6 (Version None)
Quarter: 2006Q1

REPORT INFORMATION
  Report Type: 
  Country: None (occurrence: None)
  Receive Date: 20060208
  Receipt Date: 20050427
  Transmission Date: 20060701
  Serious: Yes (Death, Hospitalization)
  Sender: FDA-Public Use
  Company Number: ES-ROCHE-403072

PATIENT
  Age: 68 Year
  Sex: Female
  Weight: 67 kg

DRUGS (23)
  1. CAPECITABINE [Suspect]
     Dosage: GIVEN ON DAYS 1 - 15 OF A 3 WEEK CYCLE.
     Route: 048
     Dates: start: 20050210, end: 20050316
  2. PLACEBO [Suspect]
     Dosage: GIVEN ON DAY 1 OF A 3 WEEK CYCLE.
     Route: 042
     Dates: start: 20050210, end: 20050326
  3. OXALIPLATIN [Suspect]
     Dosage: GIVEN ON DAY 1 OF A 3 WEEK CYCLE.
     Route: 042
     Dates: start: 20050210, end: 20050326
  4. ENALAPRIL [Concomitant]
     Dates: end: 20050317
  5. CARDYL [Concomitant]
  6. OMEPRAZOLE [Concomitant]
     Dates: start: 20050117, end: 20050317
  7. LORAZEPAM [Concomitant]
     Dates: start: 20050218
  8. PARACETAMOL [Concomitant]
     Dates: start: 20050319, end: 20050320
  9. INSULINE [Concomitant]
     Dates: start: 20050316, end: 20050324
  10. VITAMIN K [Concomitant]
     Dates: start: 20050318, end: 20050324
  11. VANCOMYCIN [Concomitant]
     Dates: start: 20050323, end: 20050325
  12. CEFTRIAXONE [Concomitant]
     Dates: start: 20050323, end: 20050325
  13. MIDAZOLAM [Concomitant]
     Dates: start: 20050325
  14. VENTOLIN [Concomitant]
     Dates: start: 20050117
  15. ENOXAPARIN SODIUM [Concomitant]
     Dates: start: 20050213, end: 20050218
  16. HYDROXOCOBALAMIN [Concomitant]
     Dates: start: 20050217
  17. URBASON [Concomitant]
     Dates: start: 20050213
  18. TAVANIC [Concomitant]
     Dates: start: 20050213, end: 20050220
  19. TERBUTALINE SULFATE [Concomitant]
     Dates: start: 20050213, end: 20050218
  20. OXYGEN [Concomitant]
     Dates: start: 20050213, end: 20050218
  21. PULMICORT [Concomitant]
     Dates: start: 20050215
  22. LOPERAMIDE [Concomitant]
     Dates: start: 20050316, end: 20050323
  23. 1 CONCOMITANT DRUG [Concomitant]
     Dates: start: 20050317, end: 20050323

REACTIONS (6)
  - ASTHENIA [None]
  - DYSPNOEA [None]
  - GASTROINTESTINAL TOXICITY [None]
  - MUCOSAL INFLAMMATION [None]
  - MYOPATHY [None]
  - NEUTROPENIA [None]
